FAERS Safety Report 19130296 (Version 2)
Quarter: 2021Q2

REPORT INFORMATION
  Report Type: Spontaneous
  Country: US (occurrence: US)
  Receive Date: 20210413
  Receipt Date: 20210419
  Transmission Date: 20210717
  Serious: Yes (Other)
  Sender: FDA-Public Use
  Company Number: US-BRISTOL-MYERS SQUIBB COMPANY-BMS-2021-034624

PATIENT
  Age: 62 Year
  Sex: Male

DRUGS (1)
  1. ELIQUIS [Suspect]
     Active Substance: APIXABAN
     Indication: CEREBROVASCULAR ACCIDENT PROPHYLAXIS
     Dosage: 5 MILLIGRAM, BID
     Route: 048

REACTIONS (6)
  - Lung neoplasm malignant [Unknown]
  - Thrombosis [Unknown]
  - Mouth haemorrhage [Unknown]
  - Cerebrovascular accident [Unknown]
  - Penile haemorrhage [Unknown]
  - Metastases to spine [Unknown]

NARRATIVE: CASE EVENT DATE: 20210315
